FAERS Safety Report 5011987-0 (Version None)
Quarter: 2006Q2

REPORT INFORMATION
  Report Type: 
  Country: None (occurrence: None)
  Receive Date: 20060526
  Receipt Date: 20060515
  Transmission Date: 20061013
  Serious: Yes (Hospitalization)
  Sender: FDA-Public Use
  Company Number: US-JNJFOC-20060501813

PATIENT
  Sex: Male

DRUGS (16)
  1. REMICADE [Suspect]
  2. REMICADE [Suspect]
  3. REMICADE [Suspect]
  4. REMICADE [Suspect]
  5. REMICADE [Suspect]
  6. REMICADE [Suspect]
  7. REMICADE [Suspect]
  8. REMICADE [Suspect]
  9. TEGRETOL [Concomitant]
     Indication: EPILEPSY
     Route: 048
  10. ALLEGRA [Concomitant]
     Indication: SINUSITIS
     Route: 048
  11. NASONEX [Concomitant]
     Indication: SINUSITIS
     Route: 045
  12. ROBINUL [Concomitant]
     Route: 048
  13. IMODIUM [Concomitant]
     Route: 048
  14. PREDNISONE TAB [Concomitant]
     Route: 048
  15. ASACOL [Concomitant]
     Route: 048
  16. PROZAC [Concomitant]
     Indication: DEPRESSION
     Route: 048

REACTIONS (3)
  - ATYPICAL MYCOBACTERIAL INFECTION [None]
  - LYMPHOMA [None]
  - SARCOIDOSIS [None]
